FAERS Safety Report 7288495-X (Version None)
Quarter: 2011Q1

REPORT INFORMATION
  Report Type: 
  Country: None (occurrence: None)
  Receive Date: 20110211
  Receipt Date: 20110208
  Transmission Date: 20110831
  Serious: Yes (Other)
  Sender: FDA-Public Use
  Company Number: D0070040A

PATIENT

DRUGS (1)
  1. VIANI [Suspect]
     Route: 055

REACTIONS (2)
  - HAEMORRHAGE [None]
  - WEIGHT INCREASED [None]
